FAERS Safety Report 13542467 (Version 1)
Quarter: 2017Q2

REPORT INFORMATION
  Report Type: Spontaneous
  Country: US (occurrence: US)
  Receive Date: 20170512
  Receipt Date: 20170512
  Transmission Date: 20170830
  Serious: No
  Sender: FDA-Public Use
  Company Number: US-ROCHE-693431

PATIENT
  Age: 59 Year
  Sex: Female
  Weight: 79.4 kg

DRUGS (17)
  1. AVASTIN [Suspect]
     Active Substance: BEVACIZUMAB
     Indication: LUNG ADENOCARCINOMA
     Route: 042
     Dates: start: 20090225, end: 20090225
  2. AVASTIN [Suspect]
     Active Substance: BEVACIZUMAB
     Dosage: NSS 100 ML SOLUTION. FREQUENCY: ONCE ONLY.
     Route: 042
     Dates: start: 20090422, end: 20090422
  3. PROGESTINE [Concomitant]
     Active Substance: PROGESTERONE
     Dosage: DRUG NAME: PROGESTINE HORMONE CREAME
     Route: 065
  4. AVASTIN [Suspect]
     Active Substance: BEVACIZUMAB
     Dosage: NSS 100 ML SOLUTION. FREQUENCY: ONCE ONLY.
     Route: 042
     Dates: start: 20090408, end: 20090408
  5. AVASTIN [Suspect]
     Active Substance: BEVACIZUMAB
     Dosage: NSS 100 ML SOLUTION. FREQUENCY: ONCE ONLY.
     Route: 042
     Dates: start: 20100112, end: 20100112
  6. AVASTIN [Suspect]
     Active Substance: BEVACIZUMAB
     Dosage: NSS 100 ML SOLUTION. FREQUENCY: ONCE ONLY.
     Route: 042
     Dates: start: 20090311, end: 20090311
  7. AVASTIN [Suspect]
     Active Substance: BEVACIZUMAB
     Dosage: NSS 100 ML SOLUTION. FREQUENCY: ONCE ONLY.
     Route: 042
     Dates: start: 20091111, end: 20091111
  8. AVASTIN [Suspect]
     Active Substance: BEVACIZUMAB
     Dosage: NSS 100 ML SOLUTION. FREQUENCY: ONCE ONLY.
     Route: 042
     Dates: start: 20091215, end: 20091215
  9. AVASTIN [Suspect]
     Active Substance: BEVACIZUMAB
     Dosage: NSS 100 ML SOLUTION. FREQUENCY: ONCE ONLY.
     Route: 042
     Dates: start: 20100301, end: 20100301
  10. AVASTIN [Suspect]
     Active Substance: BEVACIZUMAB
     Dosage: NSS 100 ML SOLUTION. FREQUENCY: ONCE ONLY.
     Route: 042
     Dates: start: 20090325, end: 20090325
  11. AVASTIN [Suspect]
     Active Substance: BEVACIZUMAB
     Dosage: NSS 100 ML SOLUTION. FREQUENCY: ONCE ONLY.
     Route: 042
     Dates: start: 20090506, end: 20090506
  12. ESTRADIOL. [Concomitant]
     Active Substance: ESTRADIOL
     Route: 065
  13. AVASTIN [Suspect]
     Active Substance: BEVACIZUMAB
     Dosage: NSS 100 ML SOLUTION. FREQUENCY: ONCE ONLY.
     Route: 042
     Dates: start: 20091201, end: 20091201
  14. AVASTIN [Suspect]
     Active Substance: BEVACIZUMAB
     Dosage: NSS 100 ML SOLUTION. FREQUENCY: ONCE ONLY.
     Route: 042
     Dates: start: 20090520, end: 20090520
  15. AVASTIN [Suspect]
     Active Substance: BEVACIZUMAB
     Dosage: NSS 100 ML SOLUTION. FREQUENCY: ONCE ONLY.
     Route: 042
     Dates: start: 20091014, end: 20091014
  16. AVASTIN [Suspect]
     Active Substance: BEVACIZUMAB
     Dosage: NSS 100 ML SOLUTION. FREQUENCY: ONCE ONLY.
     Route: 042
     Dates: start: 20091028, end: 20091028
  17. MULTIVITAMIN W MINERALS + FOLIC ACID [Concomitant]

REACTIONS (1)
  - Proctitis [Unknown]

NARRATIVE: CASE EVENT DATE: 20091201
